FAERS Safety Report 9425192 (Version 1)
Quarter: 2013Q3

REPORT INFORMATION
  Report Type: Spontaneous
  Country: US (occurrence: US)
  Receive Date: 20130729
  Receipt Date: 20130729
  Transmission Date: 20140515
  Serious: No
  Sender: FDA-Public Use
  Company Number: US-009507513-1307USA015004

PATIENT
  Sex: Female

DRUGS (1)
  1. IMPLANON [Suspect]
     Dosage: UNK
     Route: 059
     Dates: start: 20120206

REACTIONS (6)
  - Arthritis [Unknown]
  - Muscle spasms [Unknown]
  - Dizziness [Unknown]
  - Feeling hot [Unknown]
  - Pain in extremity [Unknown]
  - Sensation of pressure [Unknown]
